FAERS Safety Report 8836130 (Version 2)
Quarter: 2012Q4

REPORT INFORMATION
  Report Type: 
  Country: US (occurrence: US)
  Receive Date: 20121011
  Receipt Date: 20121129
  Transmission Date: 20130627
  Serious: Yes (Other)
  Sender: FDA-Public Use
  Company Number: PHEH2012US019921

PATIENT
  Age: 89 Year
  Sex: Female
  Weight: 52.6 kg

DRUGS (5)
  1. RECLAST [Suspect]
     Indication: OSTEOPOROSIS
     Dosage: UNK UKN, yearly
     Route: 042
     Dates: start: 20120927
  2. ATIVAN [Concomitant]
     Indication: ANXIETY
     Dosage: UNK UKN, UNK
     Route: 048
  3. ADVAIR DISKUS [Concomitant]
     Indication: PULMONARY FIBROSIS
     Dosage: 2 UKN, BID
     Route: 048
  4. ASPIRIN [Concomitant]
     Indication: CARDIOVASCULAR DISORDER
     Dosage: UNK UKN, daily
     Route: 048
  5. LISINOPRIL [Concomitant]
     Indication: BLOOD PRESSURE
     Dosage: UNK UKN, QD
     Route: 048

REACTIONS (4)
  - Tachycardia [Recovered/Resolved]
  - Chest pain [Recovered/Resolved]
  - Dyspepsia [Recovered/Resolved]
  - Application site erythema [Unknown]
